FAERS Safety Report 19220999 (Version 1)
Quarter: 2021Q2

REPORT INFORMATION
  Report Type: Spontaneous
  Country: GB (occurrence: GB)
  Receive Date: 20210506
  Receipt Date: 20210506
  Transmission Date: 20210717
  Serious: Yes (Hospitalization, Other)
  Sender: FDA-Public Use
  Company Number: GB-ALNYLAM PHARMACEUTICALS, INC.-ALN-2021-000524

PATIENT

DRUGS (1)
  1. ONPATTRO [Suspect]
     Active Substance: PATISIRAN SODIUM
     Indication: HEREDITARY NEUROPATHIC AMYLOIDOSIS
     Dosage: 21.06 MILLIGRAM, Q3W
     Route: 042
     Dates: start: 20200317

REACTIONS (5)
  - Motor dysfunction [Unknown]
  - Dyskinesia [Unknown]
  - Dyspnoea [Unknown]
  - Seizure [Unknown]
  - Speech disorder [Unknown]

NARRATIVE: CASE EVENT DATE: 20210301
